FAERS Safety Report 5636314-7 (Version None)
Quarter: 2008Q1

REPORT INFORMATION
  Report Type: 
  Country: None (occurrence: None)
  Receive Date: 20080225
  Receipt Date: 20080225
  Transmission Date: 20080703
  Serious: Yes (Death)
  Sender: FDA-Public Use
  Company Number: None

PATIENT
  Age: 30 Year
  Sex: Male
  Weight: 140.1615 kg

DRUGS (2)
  1. HEPARIN SODIUM [Suspect]
     Indication: MITRAL VALVE REPLACEMENT
     Dosage: SEE IMAGE
     Route: 040
     Dates: start: 20071221, end: 20071221
  2. HEPARIN SODIUM [Suspect]
     Indication: MITRAL VALVE REPLACEMENT
     Dosage: SEE IMAGE
     Route: 040
     Dates: start: 20071221, end: 20071221

REACTIONS (3)
  - ACIDOSIS [None]
  - HYPOTENSION [None]
  - PYREXIA [None]
